FAERS Safety Report 22004164 (Version 2)
Quarter: 2024Q2

REPORT INFORMATION
  Report Type: Spontaneous
  Country: US (occurrence: US)
  Receive Date: 20230217
  Receipt Date: 20240419
  Transmission Date: 20240716
  Serious: No
  Sender: FDA-Public Use
  Company Number: US-SA-SAC20230216000587

PATIENT
  Age: 3 Year
  Sex: Female

DRUGS (2)
  1. DUPIXENT [Suspect]
     Active Substance: DUPILUMAB
     Indication: Dermatitis atopic
     Dosage: 300 MG, OTHER
     Route: 058
  2. DUPIXENT [Suspect]
     Active Substance: DUPILUMAB
     Dosage: 300 MG, Q6W
     Route: 058

REACTIONS (4)
  - Injection site swelling [Recovered/Resolved]
  - Injection site erythema [Recovered/Resolved]
  - Skin irritation [Unknown]
  - Off label use [Unknown]
